FAERS Safety Report 5607109-5 (Version None)
Quarter: 2008Q1

REPORT INFORMATION
  Report Type: 
  Country: None (occurrence: None)
  Receive Date: 20080129
  Receipt Date: 20080117
  Transmission Date: 20080703
  Serious: Yes (Other)
  Sender: FDA-Public Use
  Company Number: US-PFIZER INC-2007093477

PATIENT
  Sex: Male
  Weight: 79.4 kg

DRUGS (5)
  1. NORVASC [Suspect]
     Indication: HYPERTENSION
     Route: 048
  2. AMLODIPINE [Suspect]
     Indication: HYPERTENSION
     Route: 048
  3. AMLODIPINE [Suspect]
     Dosage: DAILY DOSE:10MG
     Route: 048
  4. CITRUCEL [Concomitant]
  5. TAMSULOSIN HCL [Concomitant]

REACTIONS (2)
  - BLOOD PRESSURE INCREASED [None]
  - PROSTATE CANCER [None]
